FAERS Safety Report 4405068-4 (Version None)
Quarter: 2004Q3

REPORT INFORMATION
  Report Type: 
  Country: None (occurrence: None)
  Receive Date: 20040716
  Receipt Date: 20040709
  Transmission Date: 20050211
  Serious: Yes (Hospitalization)
  Sender: FDA-Public Use
  Company Number: 2004SE03941

PATIENT
  Age: 67 Year
  Sex: Female

DRUGS (2)
  1. BLOPRESS [Suspect]
     Indication: HYPERTENSION
     Dosage: 4 MG DAILY PO
     Route: 048
     Dates: start: 20040501, end: 20040625
  2. GLIMEPIRIDE [Concomitant]

REACTIONS (2)
  - RHABDOMYOLYSIS [None]
  - TREATMENT NONCOMPLIANCE [None]
